FAERS Safety Report 6310266-9 (Version None)
Quarter: 2009Q3

REPORT INFORMATION
  Report Type: 
  Country: None (occurrence: None)
  Receive Date: 20090814
  Receipt Date: 20090805
  Transmission Date: 20100115
  Serious: Yes (Hospitalization)
  Sender: FDA-Public Use
  Company Number: US-BAXTER-2009BH012471

PATIENT
  Sex: Female

DRUGS (11)
  1. DIANEAL [Suspect]
     Indication: PERITONEAL DIALYSIS
     Route: 033
     Dates: start: 20030101, end: 20090730
  2. DIANEAL [Suspect]
     Indication: PERITONEAL DIALYSIS
     Route: 033
     Dates: start: 20030101, end: 20090730
  3. CLONIDINE [Concomitant]
     Indication: DRUG USE FOR UNKNOWN INDICATION
     Route: 065
  4. DARVOCET-N 100 [Concomitant]
     Indication: HEADACHE
     Route: 065
  5. HECTOROL [Concomitant]
     Indication: PARATHYROID DISORDER
     Route: 065
  6. HEPARIN [Concomitant]
     Indication: FIBRIN
     Route: 065
  7. PHOSLO [Concomitant]
     Indication: ELECTROLYTE IMBALANCE
     Route: 065
  8. PROGESTERONE [Concomitant]
     Indication: DRUG USE FOR UNKNOWN INDICATION
     Route: 065
  9. PULMICORT-100 [Concomitant]
     Indication: ASTHMA
     Route: 055
  10. RENACAPS WITH ZINC [Concomitant]
     Indication: VITAMIN SUPPLEMENTATION
     Route: 065
  11. SENSIPAR [Concomitant]
     Indication: PARATHYROID DISORDER
     Route: 065

REACTIONS (1)
  - HYPERPARATHYROIDISM [None]
